FAERS Safety Report 12521022 (Version 14)
Quarter: 2025Q4

REPORT INFORMATION
  Report Type: Spontaneous
  Country: EU (occurrence: EU)
  Receive Date: 20160701
  Receipt Date: 20251112
  Transmission Date: 20260118
  Serious: Yes (Death, Life-Threatening, Hospitalization, Other)
  Sender: SANOFI AVENTIS
  Company Number: MASTERPMICSR-EVHUMAN_10000200380

PATIENT
  Age: 82 Year
  Sex: Female

DRUGS (20)
  1. LEVOFLOXACIN [Interacting]
     Active Substance: LEVOFLOXACIN
     Indication: Staphylococcal skin infection
     Dosage: 500 MG,1X
     Route: 048
     Dates: start: 20150521, end: 20150521
  2. LEVOFLOXACIN [Interacting]
     Active Substance: LEVOFLOXACIN
     Indication: Staphylococcal infection
     Dosage: 125 MG,QD
     Route: 048
     Dates: start: 20150522
  3. LEVOFLOXACIN [Interacting]
     Active Substance: LEVOFLOXACIN
     Dosage: 125 MG,UNK
     Route: 048
     Dates: start: 2015
  4. RIFAMPIN [Interacting]
     Active Substance: RIFAMPIN
     Indication: Staphylococcal skin infection
     Dosage: 300 MG,QD
     Route: 042
     Dates: start: 20150521
  5. RIFAMPIN [Interacting]
     Active Substance: RIFAMPIN
     Indication: Staphylococcal infection
     Dosage: 300 MG,QD
     Route: 065
  6. FENTANYL [Interacting]
     Active Substance: FENTANYL
     Indication: Ischaemic limb pain
     Dosage: 200 UG,UNK
     Route: 048
     Dates: start: 20150101
  7. FENTANYL [Interacting]
     Active Substance: FENTANYL
     Indication: Procedural pain
     Dosage: 25 UG,QH
     Route: 062
     Dates: start: 20150521, end: 20150602
  8. FENTANYL [Interacting]
     Active Substance: FENTANYL
     Indication: Pain in extremity
     Dosage: 200 UG,UNK
     Route: 065
     Dates: start: 20150521
  9. FENTANYL [Interacting]
     Active Substance: FENTANYL
     Indication: Angiopathy
     Dosage: 100 UG,UNK
     Route: 048
     Dates: start: 20150521
  10. FENTANYL [Interacting]
     Active Substance: FENTANYL
     Indication: Pain
     Dosage: 12 UG,QH
     Route: 062
     Dates: start: 20150521, end: 20150528
  11. FENTANYL [Interacting]
     Active Substance: FENTANYL
     Indication: Ischaemic limb pain
     Dosage: 25 UG,QH
     Route: 062
     Dates: start: 20150528, end: 20150602
  12. FENTANYL [Interacting]
     Active Substance: FENTANYL
     Dosage: 25 UG,UNK
     Route: 062
     Dates: start: 20150528, end: 20150602
  13. FENTANYL [Interacting]
     Active Substance: FENTANYL
     Dosage: 100 UG,UNK,100 MCG 1 TABLET UPGRADEABLE TO 200 MCG.TRANSMUCOSAL ORAL
     Route: 048
     Dates: start: 20150602, end: 20150602
  14. FENTANYL [Interacting]
     Active Substance: FENTANYL
     Dosage: UNK
     Dates: start: 20150602, end: 20150602
  15. VANCOMYCIN [Interacting]
     Active Substance: VANCOMYCIN
     Indication: Staphylococcal skin infection
     Dosage: BY A SWAB APPLIED TO A LEFT FOOT ULCER POSITIVE FOR STAPHYLOCOCCUS AUREUS
     Route: 061
     Dates: start: 20150101
  16. VANCOMYCIN [Interacting]
     Active Substance: VANCOMYCIN
     Indication: Staphylococcal infection
     Dosage: 1 G,1X, INJECTION
     Route: 042
     Dates: start: 20150521, end: 20150521
  17. VANCOMYCIN [Interacting]
     Active Substance: VANCOMYCIN
     Dosage: 500 MG,QCY, INJECTION
     Route: 042
     Dates: start: 20150522
  18. VANCOMYCIN [Interacting]
     Active Substance: VANCOMYCIN
     Dosage: 1 G,UNK
     Route: 065
  19. VANCOMYCIN [Interacting]
     Active Substance: VANCOMYCIN
     Dosage: 500 MG,UNK
     Route: 065
  20. VANCOMYCIN [Interacting]
     Active Substance: VANCOMYCIN
     Dosage: 500 MG,UNK
     Route: 065
     Dates: start: 20150501

REACTIONS (16)
  - Generalised onset non-motor seizure [Fatal]
  - Prescribed overdose [Fatal]
  - Status epilepticus [Recovered/Resolved]
  - Drug interaction [Recovered/Resolved]
  - Sopor [Recovered/Resolved]
  - Hallucination [Recovered/Resolved]
  - Tremor [Recovered/Resolved]
  - Miosis [Recovered/Resolved]
  - Altered state of consciousness [Recovered/Resolved]
  - Somnolence [Recovered/Resolved]
  - Depressed level of consciousness [Recovered/Resolved]
  - Toxicity to various agents [Unknown]
  - Overdose [Unknown]
  - Therapy naive [Unknown]
  - Off label use [Unknown]
  - Drug ineffective [Unknown]

NARRATIVE: CASE EVENT DATE: 20150206
